FAERS Safety Report 8875958 (Version 1)
Quarter: 2012Q4

REPORT INFORMATION
  Report Type: 
  Country: HR (occurrence: HR)
  Receive Date: 20121030
  Receipt Date: 20121030
  Transmission Date: 20130627
  Serious: Yes (Disabling)
  Sender: FDA-Public Use
  Company Number: PHHY2012HR095252

PATIENT
  Age: 67 Year
  Sex: Female

DRUGS (4)
  1. ATORVASTATIN CALCIUM [Suspect]
     Dosage: 1 DF, TID
     Route: 048
     Dates: start: 2009, end: 2012
  2. EUTHYROX [Concomitant]
     Indication: THYROID DISORDER
     Dosage: 50 ug, per 2 days
     Route: 048
     Dates: start: 1996
  3. EUTHYROX [Concomitant]
     Dosage: 100 ug, per 2 days
     Route: 048
     Dates: start: 1996
  4. VILPIN [Concomitant]
     Indication: HYPERTENSION
     Dosage: 5 mg, QD
     Route: 048
     Dates: start: 20091020

REACTIONS (4)
  - Gait disturbance [Not Recovered/Not Resolved]
  - Paraesthesia [Not Recovered/Not Resolved]
  - Myalgia [Not Recovered/Not Resolved]
  - Hypoaesthesia [Not Recovered/Not Resolved]
